FAERS Safety Report 13916487 (Version 1)
Quarter: 2017Q3

REPORT INFORMATION
  Report Type: Spontaneous
  Country: US (occurrence: US)
  Receive Date: 20170829
  Receipt Date: 20170829
  Transmission Date: 20171127
  Serious: No
  Sender: FDA-Public Use
  Company Number: US-MYLANLABS-2016M1043815

PATIENT
  Sex: Male

DRUGS (1)
  1. TEMAZEPAM CAPSULES USP [Suspect]
     Active Substance: TEMAZEPAM
     Indication: SLEEP DISORDER
     Dosage: 15 MG, QHS
     Route: 048
     Dates: start: 2016

REACTIONS (1)
  - Feeling abnormal [Not Recovered/Not Resolved]
